FAERS Safety Report 8742083 (Version 2)
Quarter: 2012Q4

REPORT INFORMATION
  Report Type: Report from Study
  Country: US (occurrence: US)
  Receive Date: 20120824
  Receipt Date: 20120904
  Transmission Date: 20130627
  Serious: Yes (Hospitalization)
  Sender: FDA-Public Use
  Company Number: US-JNJFOC-20120810207

PATIENT
  Age: 9 Year
  Sex: Male
  Weight: 37.2 kg

DRUGS (13)
  1. REMICADE [Suspect]
     Indication: CROHN^S DISEASE
     Route: 042
  2. PREDNISONE [Concomitant]
  3. RISPERIDONE [Concomitant]
  4. CETIRIZINE [Concomitant]
  5. FERROUS SULFATE [Concomitant]
  6. OMEPRAZOLE [Concomitant]
  7. ZOFRAN [Concomitant]
     Route: 042
  8. LORAZEPAM [Concomitant]
  9. MULTIVITAMINS [Concomitant]
  10. 6-MERCAPTOPURINE [Concomitant]
  11. CLINDAMYCIN [Concomitant]
  12. ACETAMINOPHEN [Concomitant]
  13. MIRALAX [Concomitant]

REACTIONS (2)
  - Crohn^s disease [Recovered/Resolved with Sequelae]
  - Lipase increased [Recovered/Resolved]
